FAERS Safety Report 7297718-2 (Version None)
Quarter: 2011Q1

REPORT INFORMATION
  Report Type: 
  Country: None (occurrence: None)
  Receive Date: 20110217
  Receipt Date: 20110209
  Transmission Date: 20110831
  Serious: Yes (Other)
  Sender: FDA-Public Use
  Company Number: US-ASTRAZENECA-2007UW04306

PATIENT
  Age: 45 Year
  Sex: Female
  Weight: 107 kg

DRUGS (19)
  1. ABILIFY [Concomitant]
     Dates: start: 20061110
  2. AMARYL [Concomitant]
     Dosage: ONE TAB IN THE AM AND ONE IN THE PM
     Dates: start: 20061110
  3. CYMBALTA [Concomitant]
     Dosage: 60 MG-180 MG
  4. ZOLOFT [Concomitant]
     Dosage: TAKE TWO AND ONE-HALF AT BEDTIME100
     Dates: start: 20061110
  5. CYMBALTA [Concomitant]
     Dates: start: 20061110
  6. GLUCOPHAGE [Concomitant]
     Dosage: ONE TAB IN THE AM AND ONE IN THE PM WITH MEALS
     Dates: start: 20061110
  7. TEMAZEPAM [Concomitant]
     Dosage: THREE AT BEDTIME EVERY NIGHT
     Dates: start: 20061110
  8. TRAZODONE [Concomitant]
  9. LITHIUM CARBONATE [Concomitant]
     Dosage: 1 CAPSULE THREE TIMES A DAY
     Dates: start: 20061110
  10. PYRIDOXINE HCL [Concomitant]
     Dates: start: 20061110
  11. HALDOL [Concomitant]
     Dates: start: 20000627, end: 20040817
  12. XANAX [Concomitant]
     Dosage: 1 MG-4 MG
  13. SEROQUEL [Suspect]
     Indication: SLEEP DISORDER
     Dosage: 200 MG-900 MG (AT NIGHT)
     Route: 048
     Dates: start: 20020101, end: 20060101
  14. ASPIRIN [Concomitant]
     Dates: start: 20060123
  15. ALPRAZOLAM [Concomitant]
     Dosage: ONE TABLET FOUR TIMES DAILY AND TWO AT BEDTIME
     Dates: start: 20061110
  16. SEROQUEL [Suspect]
     Dosage: 100-400 MG
     Route: 048
     Dates: start: 20040914
  17. ABILIFY [Concomitant]
     Dosage: 10 MG-20 MG
  18. ACTOS [Concomitant]
     Dates: start: 20061110
  19. LEVOTHYROXINE SODIUM [Concomitant]
     Dates: start: 20061110

REACTIONS (5)
  - TYPE 2 DIABETES MELLITUS [None]
  - DIABETES MELLITUS INADEQUATE CONTROL [None]
  - DIABETIC GASTROPARESIS [None]
  - DIABETIC NEUROPATHY [None]
  - NEUROPATHY PERIPHERAL [None]
